FAERS Safety Report 8720483 (Version 7)
Quarter: 2016Q3

REPORT INFORMATION
  Report Type: Report from Study
  Country: US (occurrence: US)
  Receive Date: 20120813
  Receipt Date: 20160930
  Transmission Date: 20161109
  Serious: Yes (Death, Hospitalization, Other)
  Sender: FDA-Public Use
  Company Number: US-ROCHE-1095922

PATIENT
  Age: 58 Year
  Sex: Female
  Weight: 79 kg

DRUGS (9)
  1. BEVACIZUMAB [Suspect]
     Active Substance: BEVACIZUMAB
     Indication: PAPILLARY SEROUS ENDOMETRIAL CARCINOMA
     Dosage: LAST DOSE ADMINISTERED ON 12/MAY/2011. TOTAL DOSE ADMINISTERED: 1185 MG
     Route: 042
     Dates: start: 20110512
  2. SYNTHROID [Concomitant]
     Active Substance: LEVOTHYROXINE SODIUM
  3. LOVENOX [Concomitant]
     Active Substance: ENOXAPARIN SODIUM
  4. IXABEPILONE [Suspect]
     Active Substance: IXABEPILONE
     Indication: PAPILLARY SEROUS ENDOMETRIAL CARCINOMA
     Dosage: LAST DOSE ADMINISTERD:12/MAY/2011, TOTAL DOSE ADMINISTERED: 56 MG
     Route: 042
     Dates: start: 20110512
  5. NORCO [Concomitant]
     Active Substance: ACETAMINOPHEN\HYDROCODONE BITARTRATE
  6. CARBOPLATIN. [Suspect]
     Active Substance: CARBOPLATIN
     Indication: PAPILLARY SEROUS ENDOMETRIAL CARCINOMA
     Dosage: AUC=6; LAST DOSE ADMINISTERED ON:12/MAY/2011, TOTAL DOSE ADMINISTERED: 492 MG.
     Route: 042
     Dates: start: 20110512
  7. COMPAZINE [Concomitant]
     Active Substance: PROCHLORPERAZINE MALEATE
  8. PROTONIX [Concomitant]
     Active Substance: PANTOPRAZOLE SODIUM
  9. VENTOLIN [Concomitant]
     Active Substance: ALBUTEROL SULFATE

REACTIONS (20)
  - Death [Fatal]
  - Febrile neutropenia [Recovered/Resolved]
  - Hypovolaemia [Unknown]
  - Ileus [Unknown]
  - Hyperkalaemia [Recovered/Resolved]
  - Supraventricular tachycardia [Recovered/Resolved]
  - Aspiration [Recovered/Resolved]
  - Abdominal distension [Unknown]
  - Neutrophil count decreased [Unknown]
  - Supraventricular tachycardia [Unknown]
  - Large intestinal obstruction [Unknown]
  - Hyperkalaemia [Unknown]
  - White blood cell count decreased [Unknown]
  - Nausea [Unknown]
  - Small intestinal obstruction [Unknown]
  - Cardiac arrest [Recovered/Resolved]
  - Large intestinal obstruction [Unknown]
  - Sepsis [Unknown]
  - Vomiting [Unknown]
  - Anaemia [Unknown]

NARRATIVE: CASE EVENT DATE: 20110518
